FAERS Safety Report 21954353 (Version 1)
Quarter: 2023Q1

REPORT INFORMATION
  Report Type: Report from Study
  Country: AR (occurrence: AR)
  Receive Date: 20230204
  Receipt Date: 20230204
  Transmission Date: 20230418
  Serious: Yes (Death, Hospitalization)
  Sender: FDA-Public Use
  Company Number: AR-JNJFOC-20230205687

PATIENT
  Age: 66 Year
  Sex: Female
  Weight: 68 kg

DRUGS (1)
  1. SIMPONI [Suspect]
     Active Substance: GOLIMUMAB
     Indication: Ankylosing spondylitis
     Route: 058
     Dates: start: 20170401

REACTIONS (5)
  - Death [Fatal]
  - Hospitalisation [Unknown]
  - COVID-19 [Unknown]
  - Arterial occlusive disease [Unknown]
  - Adverse event [Unknown]
